FAERS Safety Report 8415589-5 (Version None)
Quarter: 2012Q2

REPORT INFORMATION
  Report Type: 
  Country: None (occurrence: None)
  Receive Date: 20120606
  Receipt Date: 20120528
  Transmission Date: 20120825
  Serious: Yes (Hospitalization)
  Sender: FDA-Public Use
  Company Number: BR-ASTRAZENECA-2009SE20712

PATIENT
  Age: 65 Year
  Sex: Female
  Weight: 63 kg

DRUGS (11)
  1. SEROQUEL [Suspect]
     Indication: BIPOLAR I DISORDER
     Route: 048
     Dates: start: 20070101, end: 20090401
  2. CALTRAT D [Concomitant]
     Indication: PROPHYLAXIS
     Dosage: DAILY/ALTERNATE DAYS
     Route: 048
     Dates: start: 20080101
  3. DILTIAZEM [Concomitant]
     Indication: ARTERIAL SPASM
     Dosage: TWO TIMES A DAY
     Dates: start: 20071101
  4. CRESTOR [Suspect]
     Route: 048
  5. FLUOXETINE [Concomitant]
     Dates: start: 20090801
  6. SYNTHROID [Concomitant]
     Indication: HYPOTHYROIDISM
     Dosage: DAILY
     Route: 048
     Dates: start: 19990101
  7. SEROQUEL [Suspect]
     Route: 048
     Dates: start: 20090401
  8. CRESTOR [Suspect]
     Route: 048
     Dates: start: 20080101, end: 20120501
  9. SOY ISOFLAVONE [Concomitant]
     Indication: HORMONE THERAPY
     Route: 048
     Dates: start: 19610101
  10. BUPROPIONE [Concomitant]
     Dates: start: 20090801
  11. ALPRAZOLAM [Concomitant]
     Dates: start: 20091001

REACTIONS (5)
  - DEPRESSION [None]
  - WEIGHT DECREASED [None]
  - BLOOD CHOLESTEROL INCREASED [None]
  - ACUTE MYOCARDIAL INFARCTION [None]
  - DIVERTICULITIS [None]
